FAERS Safety Report 6590320-7 (Version None)
Quarter: 2010Q1

REPORT INFORMATION
  Report Type: 
  Country: None (occurrence: None)
  Receive Date: 20100219
  Receipt Date: 20100215
  Transmission Date: 20100710
  Serious: Yes (Death)
  Sender: FDA-Public Use
  Company Number: FR-SANOFI-AVENTIS-2010SA008583

PATIENT
  Age: 59 Year
  Sex: Female

DRUGS (9)
  1. TOPALGIC [Suspect]
     Indication: DRUG USE FOR UNKNOWN INDICATION
     Route: 048
     Dates: start: 20100111, end: 20100116
  2. CORDARONE [Suspect]
     Indication: DRUG USE FOR UNKNOWN INDICATION
     Route: 048
     Dates: end: 20100118
  3. LASILIX [Suspect]
     Indication: DRUG USE FOR UNKNOWN INDICATION
     Route: 048
     Dates: end: 20100118
  4. NAVELBINE [Suspect]
     Indication: ADENOCARCINOMA
     Route: 042
     Dates: start: 20091124, end: 20091124
  5. NAVELBINE [Suspect]
     Route: 042
     Dates: start: 20091221, end: 20091221
  6. TAHOR [Suspect]
     Indication: DRUG USE FOR UNKNOWN INDICATION
     Route: 048
     Dates: end: 20100118
  7. ATARAX [Suspect]
     Indication: DRUG USE FOR UNKNOWN INDICATION
     Route: 048
     Dates: start: 20100111, end: 20100115
  8. LEVOTHYROX [Suspect]
     Indication: HYPOTHYROIDISM
     Route: 048
     Dates: end: 20100118
  9. FLECAINIDE ACETATE [Suspect]
     Indication: DRUG USE FOR UNKNOWN INDICATION
     Route: 048
     Dates: end: 20100118

REACTIONS (3)
  - ABDOMINAL PAIN [None]
  - FAECAL VOMITING [None]
  - INTESTINAL OBSTRUCTION [None]
